FAERS Safety Report 4828093-8 (Version None)
Quarter: 2005Q4

REPORT INFORMATION
  Report Type: 
  Country: None (occurrence: None)
  Receive Date: 20051114
  Receipt Date: 20051114
  Transmission Date: 20060501
  Serious: Yes (Other)
  Sender: FDA-Public Use
  Company Number: None

PATIENT
  Age: 61 Year
  Sex: Female

DRUGS (8)
  1. DEPAKENE [Suspect]
     Indication: MOOD ALTERED
     Dosage: 625 MG BID PO
     Route: 048
     Dates: start: 20050827, end: 20050914
  2. ZOCOR [Concomitant]
  3. LANTUS [Concomitant]
  4. COLACE [Concomitant]
  5. ABILIFY [Concomitant]
  6. COGENTIN [Concomitant]
  7. NORVASC [Concomitant]
  8. SEROQUEL [Concomitant]

REACTIONS (1)
  - THROMBOCYTOPENIA [None]
